FAERS Safety Report 9466910 (Version 1)
Quarter: 2013Q3

REPORT INFORMATION
  Report Type: Spontaneous
  Country: US (occurrence: US)
  Receive Date: 20130820
  Receipt Date: 20130820
  Transmission Date: 20140515
  Serious: Yes (Hospitalization)
  Sender: FDA-Public Use
  Company Number: US-TEVA-427041USA

PATIENT
  Sex: Female

DRUGS (3)
  1. NORTREL [Suspect]
     Indication: MENORRHAGIA
     Dosage: 35/400UG
  2. NORTREL [Suspect]
     Indication: ACNE
  3. GENERESS FE [Suspect]
     Dosage: 0.8 MG NE/25 MCG EE

REACTIONS (13)
  - Nausea [Unknown]
  - Vomiting [Unknown]
  - Diarrhoea [Unknown]
  - Pain [Unknown]
  - Gastrointestinal tract irritation [Unknown]
  - Malaise [Unknown]
  - Menorrhagia [Unknown]
  - Myalgia [Unknown]
  - Abdominal distension [Unknown]
  - Alopecia [Unknown]
  - Acne [Unknown]
  - Dry skin [Unknown]
  - Malaise [Unknown]
